FAERS Safety Report 25197017 (Version 1)
Quarter: 2025Q2

REPORT INFORMATION
  Report Type: Report from Study
  Country: CA (occurrence: CA)
  Receive Date: 20250415
  Receipt Date: 20250415
  Transmission Date: 20250717
  Serious: Yes (Other)
  Sender: TAKEDA
  Company Number: CA-TAKEDA-2024TUS039751

PATIENT
  Age: 56 Year
  Sex: Male

DRUGS (14)
  1. VEDOLIZUMAB [Suspect]
     Active Substance: VEDOLIZUMAB
     Indication: Crohn^s disease
  2. VEDOLIZUMAB [Suspect]
     Active Substance: VEDOLIZUMAB
  3. VEDOLIZUMAB [Suspect]
     Active Substance: VEDOLIZUMAB
  4. DICLOFENAC [Concomitant]
     Active Substance: DICLOFENAC
  5. INCRUSE ELLIPTA [Concomitant]
     Active Substance: UMECLIDINIUM BROMIDE
  6. MAGNESIUM [Concomitant]
     Active Substance: MAGNESIUM
  7. VITAMIN D3 [Concomitant]
     Active Substance: CHOLECALCIFEROL
  8. DIVALPROEX SODIUM [Concomitant]
     Active Substance: DIVALPROEX SODIUM
  9. ASPIRIN [Concomitant]
     Active Substance: ASPIRIN
  10. CITALOPRAM [Concomitant]
     Active Substance: CITALOPRAM
  11. RABEPRAZOLE [Concomitant]
     Active Substance: RABEPRAZOLE
  12. ROSUVASTATIN [Concomitant]
     Active Substance: ROSUVASTATIN
  13. IMURAN [Concomitant]
     Active Substance: AZATHIOPRINE
  14. AMOXICILLIN [Concomitant]
     Active Substance: AMOXICILLIN

REACTIONS (11)
  - Cystitis [Unknown]
  - Urinary tract infection [Unknown]
  - Bladder discomfort [Recovering/Resolving]
  - Diarrhoea [Recovering/Resolving]
  - Mucous stools [Recovering/Resolving]
  - Feeling abnormal [Recovering/Resolving]
  - Frequent bowel movements [Unknown]
  - Device related infection [Recovering/Resolving]
  - Abdominal pain [Recovering/Resolving]
  - Malaise [Recovering/Resolving]
  - Haemorrhoids [Recovering/Resolving]

NARRATIVE: CASE EVENT DATE: 20240419
